FAERS Safety Report 4667455-9 (Version None)
Quarter: 2005Q2

REPORT INFORMATION
  Report Type: 
  Country: None (occurrence: None)
  Receive Date: 20050520
  Receipt Date: 20050224
  Transmission Date: 20051028
  Serious: Yes (Disabling)
  Sender: FDA-Public Use
  Company Number: PHEH2005US02469

PATIENT
  Sex: Female
  Weight: 45 kg

DRUGS (1)
  1. AREDIA [Suspect]
     Indication: BREAST CANCER METASTATIC
     Dosage: UNK, QMO
     Dates: start: 19990201, end: 20030207

REACTIONS (3)
  - ASEPTIC NECROSIS BONE [None]
  - METASTASIS [None]
  - OSTEOMYELITIS [None]
